FAERS Safety Report 7016230-9 (Version None)
Quarter: 2010Q3

REPORT INFORMATION
  Report Type: 
  Country: None (occurrence: None)
  Receive Date: 20100927
  Receipt Date: 20100129
  Transmission Date: 20110219
  Serious: No
  Sender: FDA-Public Use
  Company Number: US-ASTRAZENECA-2010SE04184

PATIENT
  Age: 837 Month
  Sex: Female
  Weight: 62.6 kg

DRUGS (6)
  1. ARIMIDEX [Suspect]
     Indication: BREAST CANCER
     Route: 048
     Dates: start: 20080901, end: 20091101
  2. TOPROL-XL [Concomitant]
  3. MULTI-VITAMINS [Concomitant]
  4. MAGNESIUM [Concomitant]
  5. VITAMIN D [Concomitant]
  6. ZANTAC [Concomitant]

REACTIONS (3)
  - CHONDROCALCINOSIS PYROPHOSPHATE [None]
  - MUSCULOSKELETAL STIFFNESS [None]
  - OSTEOARTHRITIS [None]
